FAERS Safety Report 10593753 (Version 7)
Quarter: 2015Q4

REPORT INFORMATION
  Report Type: Spontaneous
  Country: US (occurrence: US)
  Receive Date: 20141119
  Receipt Date: 20151001
  Transmission Date: 20160304
  Serious: No
  Sender: FDA-Public Use
  Company Number: US-PFIZER INC-2014206255

PATIENT
  Age: 59 Year
  Sex: Female
  Weight: 90.7 kg

DRUGS (5)
  1. XANAX [Concomitant]
     Active Substance: ALPRAZOLAM
     Dosage: UNK
  2. LYRICA [Suspect]
     Active Substance: PREGABALIN
     Indication: PRURITUS
     Dosage: 100 MG, UNK
     Route: 048
  3. LYRICA [Suspect]
     Active Substance: PREGABALIN
     Indication: NERVE INJURY
     Dosage: 200 MG, 2X/DAY
     Route: 048
  4. LYRICA [Suspect]
     Active Substance: PREGABALIN
     Indication: NEURALGIA
     Dosage: 100 MG (BY TAKING TWO 50MG AT A TIME), 2X/DAY
     Route: 048
     Dates: start: 201409
  5. LYRICA [Suspect]
     Active Substance: PREGABALIN
     Indication: NEUROPATHY PERIPHERAL
     Dosage: 75 MG, UNK
     Route: 048

REACTIONS (8)
  - Pain [Unknown]
  - Drug ineffective [Unknown]
  - Eating disorder [Unknown]
  - Weight fluctuation [Unknown]
  - Condition aggravated [Unknown]
  - Pruritus [Unknown]
  - Confusional state [Unknown]
  - Depression [Unknown]

NARRATIVE: CASE EVENT DATE: 20141114
